FAERS Safety Report 18089587 (Version 4)
Quarter: 2020Q4

REPORT INFORMATION
  Report Type: Report from Study
  Country: MX (occurrence: MX)
  Receive Date: 20200729
  Receipt Date: 20201030
  Transmission Date: 20210113
  Serious: Yes (Death, Hospitalization)
  Sender: FDA-Public Use
  Company Number: MX-SEATTLE GENETICS-2020SGN03297

PATIENT
  Age: 32 Year
  Sex: Male

DRUGS (1)
  1. BRENTUXIMAB VEDOTIN [Suspect]
     Active Substance: BRENTUXIMAB VEDOTIN
     Indication: HODGKIN^S DISEASE
     Dosage: 122 MILLIGRAM
     Route: 042
     Dates: start: 20200626

REACTIONS (2)
  - Neuropathy peripheral [Fatal]
  - Dizziness [Unknown]

NARRATIVE: CASE EVENT DATE: 20200828
